FAERS Safety Report 5571428-1 (Version None)
Quarter: 2007Q4

REPORT INFORMATION
  Report Type: 
  Country: None (occurrence: None)
  Receive Date: 20071221
  Receipt Date: 20070904
  Transmission Date: 20080405
  Serious: Yes (Life-Threatening)
  Sender: FDA-Public Use
  Company Number: A0656623A

PATIENT
  Age: 58 Year
  Sex: Male

DRUGS (2)
  1. AVANDARYL [Suspect]
     Route: 048
     Dates: start: 20070409, end: 20070606
  2. METFORMIN HYDROCHLORIDE [Concomitant]
     Dosage: 500MG UNKNOWN
     Route: 048
     Dates: start: 20060602

REACTIONS (4)
  - CARDIAC FAILURE [None]
  - CARDIAC FAILURE CONGESTIVE [None]
  - OEDEMA [None]
  - WEIGHT INCREASED [None]
